FAERS Safety Report 4996304-4 (Version None)
Quarter: 2006Q2

REPORT INFORMATION
  Report Type: 
  Country: None (occurrence: None)
  Receive Date: 20060505
  Receipt Date: 20060420
  Transmission Date: 20061013
  Serious: Yes (Life-Threatening, Other)
  Sender: FDA-Public Use
  Company Number: 2006RR-02103

PATIENT
  Age: 70 Year
  Weight: 57.5 kg

DRUGS (9)
  1. IBUPROFEN [Suspect]
     Dosage: ORAL
     Route: 048
     Dates: start: 20051201, end: 20060101
  2. CO-AMOXICLAV (AMOXICILLIN TRIHYDRATE) [Suspect]
     Indication: ABSCESS
     Dosage: ORAL
     Route: 048
     Dates: start: 20051201, end: 20060101
  3. MOVICOL [Concomitant]
  4. MOVICOL [Concomitant]
  5. MOVICOL [Concomitant]
  6. MOVICOL [Concomitant]
  7. OMEPRAZOLE [Concomitant]
  8. LACTULOSE [Concomitant]
  9. ACETAMINOPHEN [Concomitant]

REACTIONS (4)
  - CONSTIPATION [None]
  - DUODENAL ULCER HAEMORRHAGE [None]
  - GASTRITIS [None]
  - JAUNDICE CHOLESTATIC [None]
